FAERS Safety Report 4577426-9 (Version None)
Quarter: 2005Q1

REPORT INFORMATION
  Report Type: 
  Country: None (occurrence: None)
  Receive Date: 20050208
  Receipt Date: 20050128
  Transmission Date: 20050727
  Serious: Yes (Other)
  Sender: FDA-Public Use
  Company Number: GBWYE261907DEC04

PATIENT
  Age: 28 Year
  Sex: Male

DRUGS (2)
  1. EFFEXOR XR [Suspect]
     Indication: DEPRESSION
     Dosage: 75 MG 2X PER 1 DAY ORAL
     Route: 048
     Dates: start: 20041122, end: 20041125
  2. DICLOFENAC SODIUM [Concomitant]

REACTIONS (6)
  - ABDOMINAL PAIN [None]
  - HEPATIC PAIN [None]
  - RECTAL HAEMORRHAGE [None]
  - RENAL PAIN [None]
  - TREATMENT NONCOMPLIANCE [None]
  - VISUAL DISTURBANCE [None]
